FAERS Safety Report 4381833-7 (Version None)
Quarter: 2004Q2

REPORT INFORMATION
  Report Type: 
  Country: None (occurrence: None)
  Receive Date: 20040603
  Receipt Date: 20030715
  Transmission Date: 20050107
  Serious: Yes (Death)
  Sender: FDA-Public Use
  Company Number: 200316492US

PATIENT
  Age: 75 Year
  Sex: Female
  Weight: 104 kg

DRUGS (5)
  1. LOVENOX [Suspect]
     Indication: ACUTE MYOCARDIAL INFARCTION
     Dosage: 104 (1MG/KG) MG Q12H
     Dates: start: 20030528, end: 20030601
  2. LOVENOX [Suspect]
     Indication: CORONARY ARTERY DISEASE
     Dosage: 104 (1MG/KG) MG Q12H
     Dates: start: 20030528, end: 20030601
  3. INTEGRILIN [Suspect]
     Indication: CORONARY ARTERY DISEASE
     Dosage: 180 UG/KG ONCE
  4. INTEGRILIN [Suspect]
     Indication: CORONARY ARTERY DISEASE
  5. PLAVIX [Concomitant]

REACTIONS (3)
  - HAEMOGLOBIN DECREASED [None]
  - RETROPERITONEAL HAEMATOMA [None]
  - UNEVALUABLE EVENT [None]
